FAERS Safety Report 16171338 (Version 1)
Quarter: 2019Q2

REPORT INFORMATION
  Report Type: Spontaneous
  Country: US (occurrence: US)
  Receive Date: 20190408
  Receipt Date: 20190408
  Transmission Date: 20190711
  Serious: No
  Sender: FDA-Public Use
  Company Number: US-TARO-2019TAR00082

PATIENT
  Sex: Female

DRUGS (1)
  1. FLUOROURACIL TOPICAL CREAM USP 5% [Suspect]
     Active Substance: FLUOROURACIL
     Route: 061

REACTIONS (4)
  - Chemical burn of skin [Not Recovered/Not Resolved]
  - Burning sensation [Unknown]
  - Erythema [Not Recovered/Not Resolved]
  - Scar [Not Recovered/Not Resolved]
